FAERS Safety Report 4855709-2 (Version None)
Quarter: 2005Q4

REPORT INFORMATION
  Report Type: 
  Country: None (occurrence: None)
  Receive Date: 20051216
  Receipt Date: 20051202
  Transmission Date: 20060501
  Serious: Yes (Death)
  Sender: FDA-Public Use
  Company Number: JP-ROCHE-427582

PATIENT
  Age: 56 Year
  Sex: Female
  Weight: 52 kg

DRUGS (6)
  1. PEGASYS [Suspect]
     Route: 058
     Dates: start: 20050902, end: 20051112
  2. VOLTAREN [Suspect]
     Indication: PYREXIA
     Route: 054
     Dates: start: 20051128, end: 20051129
  3. LOXONIN [Concomitant]
     Route: 048
     Dates: start: 20050904, end: 20051126
  4. SELBEX [Concomitant]
     Route: 048
     Dates: start: 20050904, end: 20051126
  5. ALTAT [Concomitant]
     Route: 048
     Dates: start: 20051126
  6. PL [Concomitant]
     Route: 048

REACTIONS (15)
  - AGRANULOCYTOSIS [None]
  - ANTINUCLEAR ANTIBODY INCREASED [None]
  - BLOOD IMMUNOGLOBULIN G INCREASED [None]
  - BLOOD PRESSURE DECREASED [None]
  - BONE MARROW FAILURE [None]
  - CARDIAC ARREST [None]
  - GASTRITIS HAEMORRHAGIC [None]
  - GENERAL PHYSICAL HEALTH DETERIORATION [None]
  - HISTIOCYTOSIS HAEMATOPHAGIC [None]
  - IMMUNE SYSTEM DISORDER [None]
  - NAUSEA [None]
  - PNEUMONIA [None]
  - PSEUDOMONAL SEPSIS [None]
  - RESPIRATORY DEPRESSION [None]
  - VIRAL INFECTION [None]
